FAERS Safety Report 4646628-5 (Version None)
Quarter: 2005Q2

REPORT INFORMATION
  Report Type: 
  Country: None (occurrence: None)
  Receive Date: 20050425
  Receipt Date: 20050411
  Transmission Date: 20051028
  Serious: Yes (Other)
  Sender: FDA-Public Use
  Company Number: 2005037635

PATIENT
  Sex: Male

DRUGS (2)
  1. BEXTRA [Suspect]
     Indication: ILL-DEFINED DISORDER
     Dosage: 20 MG
  2. SIMVASTATIN [Concomitant]

REACTIONS (3)
  - OEDEMA PERIPHERAL [None]
  - SURGERY [None]
  - WEIGHT DECREASED [None]
